FAERS Safety Report 9008662 (Version 1)
Quarter: 2013Q1

REPORT INFORMATION
  Report Type: Spontaneous
  Country: US (occurrence: US)
  Receive Date: 20130111
  Receipt Date: 20130111
  Transmission Date: 20140127
  Serious: Yes (Death)
  Sender: FDA-Public Use
  Company Number: US-PFIZER INC-2013007056

PATIENT
  Age: 49 Year
  Sex: Male

DRUGS (6)
  1. HALOPERIDOL [Suspect]
     Dosage: UNK
     Route: 048
  2. ATENOLOL [Suspect]
     Dosage: UNK
     Route: 048
  3. VALPROIC ACID [Suspect]
     Dosage: UNK
     Route: 048
  4. CLONAZEPAM [Suspect]
     Dosage: UNK
     Route: 048
  5. LAMOTRIGINE [Suspect]
     Dosage: UNK
     Route: 048
  6. OMEPRAZOLE [Suspect]
     Dosage: UNK
     Route: 048

REACTIONS (1)
  - Completed suicide [Fatal]
